FAERS Safety Report 14420527 (Version 1)
Quarter: 2018Q1

REPORT INFORMATION
  Report Type: Spontaneous
  Country: US (occurrence: US)
  Receive Date: 20180122
  Receipt Date: 20180122
  Transmission Date: 20180509
  Serious: No
  Sender: FDA-Public Use
  Company Number: US-ROCHE-1980956

PATIENT
  Sex: Female

DRUGS (1)
  1. RITUXAN [Suspect]
     Active Substance: RITUXIMAB
     Indication: RHEUMATOID ARTHRITIS
     Dosage: 1000 MG X 2 PER COURSE.
     Route: 065

REACTIONS (2)
  - Infection [Not Recovered/Not Resolved]
  - Hypogammaglobulinaemia [Not Recovered/Not Resolved]
